FAERS Safety Report 17184978 (Version 1)
Quarter: 2019Q4

REPORT INFORMATION
  Report Type: Spontaneous
  Country: DE (occurrence: DE)
  Receive Date: 20191220
  Receipt Date: 20191220
  Transmission Date: 20200122
  Serious: Yes (Other)
  Sender: FDA-Public Use
  Company Number: DE-MYLANLABS-2019M1125929

PATIENT
  Age: 33 Year
  Sex: Female
  Weight: 97 kg

DRUGS (15)
  1. METOPROLOL. [Suspect]
     Active Substance: METOPROLOL
     Dosage: 142.5 [MG/D (95-0-47.5)]
     Route: 048
     Dates: start: 20130702, end: 20131217
  2. AMLODIPINE MALEATE [Concomitant]
     Active Substance: AMLODIPINE MALEATE
     Indication: RENAL HYPERTENSION
     Dosage: 7.5 [MG/D (2.5-0-5)]
     Route: 048
  3. AZATHIOPRINE. [Suspect]
     Active Substance: AZATHIOPRINE
     Dosage: 50 MG, 2X/DAY (BID)
     Dates: start: 20130702, end: 20140114
  4. THYROXIN [Concomitant]
     Active Substance: LEVOTHYROXINE
     Indication: HYPOTHYROIDISM
     Dosage: 12.5 ?G, 2X/DAY (BID)
     Route: 048
     Dates: start: 20130702, end: 20140114
  5. DEKRISTOL [Concomitant]
     Active Substance: CHOLECALCIFEROL
     Indication: VITAMIN SUPPLEMENTATION
     Dosage: 20000 IU, WEEKLY (QW)
     Route: 048
     Dates: start: 20130702, end: 20131217
  6. AZATHIOPRINE. [Suspect]
     Active Substance: AZATHIOPRINE
     Indication: PROPHYLAXIS AGAINST TRANSPLANT REJECTION
     Dosage: 50 MG/D
     Route: 048
     Dates: start: 2012, end: 201307
  7. BELOC-ZOK COMP [Concomitant]
     Active Substance: HYDROCHLOROTHIAZIDE\METOPROLOL SUCCINATE
     Indication: RENAL HYPERTENSION
     Dosage: 70.75 [MG/D (47.5-0-23.75)]
     Route: 048
     Dates: start: 20140114, end: 20140114
  8. DOPEGYT [Suspect]
     Active Substance: METHYLDOPA
     Indication: RENAL HYPERTENSION
     Dosage: 250 MG, 2X/DAY (BID)
     Route: 048
     Dates: start: 20130702, end: 20140114
  9. PARTUSISTEN [Concomitant]
     Active Substance: FENOTEROL
     Indication: TOCOLYSIS
     Dosage: UNK
     Route: 042
     Dates: start: 20140114, end: 20140114
  10. AMPICILLIN POTASSIUM [Concomitant]
     Indication: ANTIBIOTIC PROPHYLAXIS
     Dosage: UNK
     Dates: start: 20140114, end: 20140114
  11. METOPROLOL. [Suspect]
     Active Substance: METOPROLOL
     Indication: RENAL HYPERTENSION
     Dosage: UNK
     Route: 048
     Dates: start: 2012, end: 201307
  12. PROGRAF [Suspect]
     Active Substance: TACROLIMUS
     Indication: PROPHYLAXIS AGAINST TRANSPLANT REJECTION
     Dosage: 5.5 [MG/D (3-0-2.5 MG/D)]
     Route: 048
     Dates: start: 2007, end: 20140114
  13. ADALAT [Concomitant]
     Active Substance: NIFEDIPINE
     Indication: TOCOLYSIS
     Dosage: UNK
     Route: 042
  14. BETAMETHASONE. [Concomitant]
     Active Substance: BETAMETHASONE
     Indication: MATERNAL THERAPY TO ENHANCE FOETAL LUNG MATURITY
     Dosage: IN WEEK 25+3, 25+4 AND AGAIN IN WEEK 28+0
  15. FOLIC ACID. [Concomitant]
     Active Substance: FOLIC ACID
     Indication: PROPHYLAXIS OF NEURAL TUBE DEFECT
     Dosage: 0.6 MG, ONCE DAILY (QD)
     Route: 048
     Dates: start: 20130702, end: 20131217

REACTIONS (4)
  - Premature delivery [Unknown]
  - Cervical incompetence [Unknown]
  - Maternal exposure during pregnancy [Recovered/Resolved]
  - Polyhydramnios [Recovered/Resolved]

NARRATIVE: CASE EVENT DATE: 20130702
